FAERS Safety Report 9878301 (Version 3)
Quarter: 2014Q1

REPORT INFORMATION
  Report Type: Spontaneous
  Country: US (occurrence: US)
  Receive Date: 20140206
  Receipt Date: 20140316
  Transmission Date: 20141002
  Serious: Yes (Hospitalization)
  Sender: FDA-Public Use
  Company Number: US-BAYER-2014-018869

PATIENT
  Age: 21 Year
  Sex: Female
  Weight: 56.69 kg

DRUGS (8)
  1. MIRENA [Suspect]
     Indication: CONTRACEPTION
     Dosage: 20 MCG/24HR, CONT
     Route: 015
     Dates: start: 20080220, end: 20090306
  2. DECONEX [Concomitant]
  3. AMITRIPTYLINE [Concomitant]
     Dosage: 10 MG, UNK
  4. PROAIR HFA [Concomitant]
  5. SYNTHROID [Concomitant]
     Dosage: 75 DAILY
  6. MIDRIN [Concomitant]
     Dosage: ONE] TO [TWO] Q 4 PRN
  7. MACROBID [Concomitant]
  8. GARDASIL [Concomitant]

REACTIONS (4)
  - Uterine perforation [None]
  - Injury [None]
  - Pain [None]
  - Emotional distress [None]
